FAERS Safety Report 9111918 (Version 1)
Quarter: 2013Q1

REPORT INFORMATION
  Report Type: Spontaneous
  Country: US (occurrence: US)
  Receive Date: 20130219
  Receipt Date: 20130219
  Transmission Date: 20140127
  Serious: No
  Sender: FDA-Public Use
  Company Number: US-BRISTOL-MYERS SQUIBB COMPANY-16539454

PATIENT
  Age: 52 Year
  Sex: Female
  Weight: 70.75 kg

DRUGS (3)
  1. ABATACEPT SUBQ INJECTION 125MG/ML [Suspect]
     Indication: RHEUMATOID ARTHRITIS
     Dosage: MAY-2011 (IV) AND IN NOV-2011  (SC)
     Route: 058
     Dates: start: 201111
  2. PLAQUENIL [Suspect]
  3. ARAVA [Suspect]

REACTIONS (1)
  - Photosensitivity reaction [Not Recovered/Not Resolved]
